FAERS Safety Report 5732960-0 (Version None)
Quarter: 2008Q2

REPORT INFORMATION
  Report Type: 
  Country: None (occurrence: None)
  Receive Date: 20080507
  Receipt Date: 20080507
  Transmission Date: 20081010
  Serious: Yes (Other)
  Sender: FDA-Public Use
  Company Number: None

PATIENT
  Age: 65 Year
  Sex: Female
  Weight: 104.3273 kg

DRUGS (1)
  1. DIGITEK  250 MCG  BERTEK PHARMACEUTICALS [Suspect]
     Indication: CARDIAC DISORDER
     Dosage: 250 MCG ONCE DAILY PO
     Route: 048
     Dates: start: 19980101, end: 20080506

REACTIONS (2)
  - DIZZINESS [None]
  - POLLAKIURIA [None]
